FAERS Safety Report 7498675-6 (Version None)
Quarter: 2011Q2

REPORT INFORMATION
  Report Type: 
  Country: None (occurrence: None)
  Receive Date: 20110524
  Receipt Date: 20110519
  Transmission Date: 20111010
  Serious: Yes (Hospitalization, Other)
  Sender: FDA-Public Use
  Company Number: AU-US-EMD SERONO, INC.-7027029

PATIENT
  Sex: Female

DRUGS (1)
  1. REBIF [Suspect]
     Indication: PRODUCT USED FOR UNKNOWN INDICATION
     Dates: start: 20100609

REACTIONS (6)
  - MULTIPLE SCLEROSIS RELAPSE [None]
  - BRAIN NEOPLASM [None]
  - PANCREATIC MASS [None]
  - CONVULSION [None]
  - NEUROLOGICAL SYMPTOM [None]
  - CENTRAL NERVOUS SYSTEM LESION [None]
